FAERS Safety Report 6127244-5 (Version None)
Quarter: 2009Q1

REPORT INFORMATION
  Report Type: 
  Country: None (occurrence: None)
  Receive Date: 20090318
  Receipt Date: 20090304
  Transmission Date: 20090719
  Serious: No
  Sender: FDA-Public Use
  Company Number: 2009-192703-NL

PATIENT
  Age: 82 Year
  Sex: Male

DRUGS (6)
  1. DEXAMETHASONE SODIUM PHOSPHATE [Suspect]
     Indication: PALLIATIVE CARE
     Dosage: 8 MG
     Dates: start: 20070614
  2. SPIRONOLACTONE [Suspect]
     Indication: FLUID RETENTION
     Dosage: 12.5 MG
     Dates: start: 20070101, end: 20070601
  3. FUROSEMIDE [Concomitant]
  4. SULFAMETHOXAZOLE AND TRIMETHOPRIM [Concomitant]
  5. AMLODIPINE BESYLATE [Concomitant]
  6. ALLOPURINOL [Concomitant]

REACTIONS (4)
  - HYPERKALAEMIA [None]
  - HYPONATRAEMIA [None]
  - PNEUMOCYSTIS JIROVECI INFECTION [None]
  - SPUTUM CULTURE POSITIVE [None]
